FAERS Safety Report 4483761-5 (Version None)
Quarter: 2004Q4

REPORT INFORMATION
  Report Type: 
  Country: None (occurrence: None)
  Receive Date: 20041025
  Receipt Date: 20040923
  Transmission Date: 20050328
  Serious: Yes (Other)
  Sender: FDA-Public Use
  Company Number: US-BRISTOL-MYERS SQUIBB COMPANY-12709994

PATIENT
  Age: 64 Year
  Sex: Male
  Weight: 107 kg

DRUGS (3)
  1. ERBITUX [Suspect]
     Indication: COLON CANCER
     Route: 042
     Dates: start: 20040901, end: 20040901
  2. BENADRYL [Concomitant]
     Indication: PREMEDICATION
     Route: 042
  3. TYLENOL [Concomitant]
     Indication: PREMEDICATION
     Route: 048

REACTIONS (3)
  - HAEMOLYTIC ANAEMIA [None]
  - INFUSION RELATED REACTION [None]
  - LIVER FUNCTION TEST ABNORMAL [None]
